FAERS Safety Report 20853466 (Version 1)
Quarter: 2022Q2

REPORT INFORMATION
  Report Type: Spontaneous
  Country: CN (occurrence: CN)
  Receive Date: 20220520
  Receipt Date: 20220520
  Transmission Date: 20220721
  Serious: Yes (Other)
  Sender: FDA-Public Use
  Company Number: CN-PFIZER INC-202200696402

PATIENT
  Age: 34 Year
  Sex: Male

DRUGS (2)
  1. CEFOBID [Suspect]
     Active Substance: CEFOPERAZONE
     Indication: Appendicitis
     Dosage: EVERY 12 HOURS
     Route: 041
     Dates: start: 20220130, end: 20220130
  2. CEFOBID [Suspect]
     Active Substance: CEFOPERAZONE
     Indication: Focal peritonitis

REACTIONS (6)
  - Rash [Recovered/Resolved]
  - Pruritus [Recovered/Resolved]
  - Rash maculo-papular [Recovered/Resolved]
  - Rash erythematous [Recovered/Resolved]
  - Drug hypersensitivity [Recovered/Resolved]
  - Drug eruption [Recovered/Resolved]

NARRATIVE: CASE EVENT DATE: 20220130
